FAERS Safety Report 9565425 (Version 2)
Quarter: 2013Q4

REPORT INFORMATION
  Report Type: Spontaneous
  Country: SE (occurrence: SE)
  Receive Date: 20130930
  Receipt Date: 20131031
  Transmission Date: 20140711
  Serious: Yes (Other)
  Sender: FDA-Public Use
  Company Number: SE-ELI_LILLY_AND_COMPANY-SE201309006596

PATIENT
  Sex: Male

DRUGS (1)
  1. CYMBALTA [Suspect]
     Indication: POST-TRAUMATIC STRESS DISORDER
     Dosage: 90 MG, QD
     Route: 048
     Dates: start: 20120907, end: 20130705

REACTIONS (3)
  - Hepatotoxicity [Recovered/Resolved]
  - Free haemoglobin present [Unknown]
  - Off label use [Recovered/Resolved]
